FAERS Safety Report 18148239 (Version 2)
Quarter: 2020Q4

REPORT INFORMATION
  Report Type: Report from Study
  Country: CA (occurrence: CA)
  Receive Date: 20200813
  Receipt Date: 20201121
  Transmission Date: 20210113
  Serious: Yes (Other)
  Sender: FDA-Public Use
  Company Number: PHHY2016CA173702

PATIENT
  Sex: Female

DRUGS (9)
  1. ILARIS [Suspect]
     Active Substance: CANAKINUMAB
     Dosage: 150 MG (EVERY 8 WEEKS)
     Route: 065
     Dates: start: 20181119
  2. ILARIS [Suspect]
     Active Substance: CANAKINUMAB
     Dosage: 150 MG, 7 WEEKS
     Route: 058
     Dates: start: 20171030
  3. ILARIS [Suspect]
     Active Substance: CANAKINUMAB
     Dosage: 150 MG, 8 WEEKS
     Route: 058
     Dates: start: 20150205
  4. ILARIS [Suspect]
     Active Substance: CANAKINUMAB
     Dosage: 150 MG, (EVERY 8 WEEKS)
     Route: 065
     Dates: start: 20180928
  5. ILARIS [Suspect]
     Active Substance: CANAKINUMAB
     Dosage: 150 MG, 7 WEEKS
     Route: 058
     Dates: start: 20171221
  6. ILARIS [Suspect]
     Active Substance: CANAKINUMAB
     Dosage: 300 MG, EVERY 2 MONTHS
     Route: 065
  7. ILARIS [Suspect]
     Active Substance: CANAKINUMAB
     Dosage: 300 MG, 8 WEEKS
     Route: 058
  8. ILARIS [Suspect]
     Active Substance: CANAKINUMAB
     Dosage: 300 MG (EVERY 8 WEEKS)
     Route: 065
     Dates: start: 201905
  9. ILARIS [Suspect]
     Active Substance: CANAKINUMAB
     Indication: MUCKLE-WELLS SYNDROME
     Dosage: 150 MG, 8 WEEKS
     Route: 058

REACTIONS (10)
  - Fatigue [Recovering/Resolving]
  - Eye pruritus [Recovered/Resolved]
  - Deafness [Recovered/Resolved]
  - Solar dermatitis [Unknown]
  - Serum amyloid A protein increased [Not Recovered/Not Resolved]
  - Arthralgia [Unknown]
  - Myalgia [Recovered/Resolved]
  - Malaise [Recovering/Resolving]
  - Conjunctivitis [Unknown]
  - Inappropriate schedule of product administration [Unknown]

NARRATIVE: CASE EVENT DATE: 2016
